FAERS Safety Report 5165256-9 (Version None)
Quarter: 2006Q4

REPORT INFORMATION
  Report Type: 
  Country: None (occurrence: None)
  Receive Date: 20061124
  Receipt Date: 20061113
  Transmission Date: 20070319
  Serious: Yes (Hospitalization)
  Sender: FDA-Public Use
  Company Number: 2006141400

PATIENT
  Age: 26 Year
  Sex: Male

DRUGS (11)
  1. VORICONAZOLE (VORICONAZOLE) [Suspect]
     Indication: BRONCHOPULMONARY ASPERGILLOSIS ALLERGIC
     Dosage: 400 MG (200 MG, 2 IN 1 D), ORAL
     Route: 048
     Dates: start: 20051201, end: 20061005
  2. AZITHROMYCIN [Concomitant]
  3. CALCICHEW-D3 (CALCIUM CARBONATE, COLECALCIFEROL) [Concomitant]
  4. CREON [Concomitant]
  5. PULMOZYME [Concomitant]
  6. FLUTICASONE PROPIONATE [Concomitant]
  7. OMEPRAZOLE [Concomitant]
  8. TAURINE (TAURINE) [Concomitant]
  9. URSODIOL [Concomitant]
  10. VITAMIN A AND D (ERGOCALCIFEROL, RETINOL) [Concomitant]
  11. VITAMIN E [Concomitant]

REACTIONS (3)
  - BODY TEMPERATURE INCREASED [None]
  - C-REACTIVE PROTEIN INCREASED [None]
  - PHOTOSENSITIVITY REACTION [None]
